FAERS Safety Report 23803975 (Version 2)
Quarter: 2024Q2

REPORT INFORMATION
  Report Type: Spontaneous
  Country: IT (occurrence: IT)
  Receive Date: 20240501
  Receipt Date: 20240516
  Transmission Date: 20240716
  Serious: Yes (Other)
  Sender: FDA-Public Use
  Company Number: IT-OTSUKA-2024_006272

PATIENT
  Age: 29 Year
  Sex: Female

DRUGS (1)
  1. ABILIFY MAINTENA [Suspect]
     Active Substance: ARIPIPRAZOLE
     Indication: Bipolar I disorder
     Dosage: 400 MG
     Route: 065
     Dates: start: 20220617, end: 20240306

REACTIONS (4)
  - Abortion induced [Recovered/Resolved]
  - Maternal exposure during pregnancy [Unknown]
  - Off label use [Recovered/Resolved]
  - Social problem [Unknown]

NARRATIVE: CASE EVENT DATE: 20220617
